FAERS Safety Report 22132287 (Version 4)
Quarter: 2024Q1

REPORT INFORMATION
  Report Type: Report from Study
  Country: IN (occurrence: IN)
  Receive Date: 20230323
  Receipt Date: 20240117
  Transmission Date: 20240410
  Serious: Yes (Other)
  Sender: FDA-Public Use
  Company Number: IN-002147023-NVSC2022IN040806

PATIENT
  Age: 78 Year
  Sex: Male
  Weight: 57 kg

DRUGS (12)
  1. ELTROMBOPAG OLAMINE [Suspect]
     Active Substance: ELTROMBOPAG OLAMINE
     Indication: Immune thrombocytopenia
     Dosage: UNK
     Route: 048
     Dates: start: 202110
  2. ELTROMBOPAG OLAMINE [Suspect]
     Active Substance: ELTROMBOPAG OLAMINE
     Dosage: UNK
     Route: 065
     Dates: start: 20211116
  3. ELTROMBOPAG OLAMINE [Suspect]
     Active Substance: ELTROMBOPAG OLAMINE
     Dosage: 25 MG, OTHER (25MG/AD)
     Route: 065
     Dates: start: 20220124
  4. ELTROMBOPAG OLAMINE [Suspect]
     Active Substance: ELTROMBOPAG OLAMINE
     Dosage: 50 MG, OTHER (50 MG/AD)
     Route: 065
     Dates: start: 20220124
  5. ELTROMBOPAG OLAMINE [Suspect]
     Active Substance: ELTROMBOPAG OLAMINE
     Dosage: 50 MG, QD IN 6 DAYS IN WEEK
     Route: 048
     Dates: start: 20230311
  6. ELTROMBOPAG OLAMINE [Suspect]
     Active Substance: ELTROMBOPAG OLAMINE
     Dosage: 25 MG, QW
     Route: 048
     Dates: start: 20230311
  7. ELTROMBOPAG OLAMINE [Suspect]
     Active Substance: ELTROMBOPAG OLAMINE
     Dosage: 50 MG OTHER (6 DAYS IN WEEK)
     Route: 048
     Dates: start: 20230708
  8. ELTROMBOPAG OLAMINE [Suspect]
     Active Substance: ELTROMBOPAG OLAMINE
     Dosage: 25 MG, QW
     Route: 048
     Dates: start: 20230708
  9. ELTROMBOPAG OLAMINE [Suspect]
     Active Substance: ELTROMBOPAG OLAMINE
     Dosage: UNK (50 MG OD FOR 6 DAYS AND 25 MG OD FOR 1 DAY FROM PAST 3 MONTHS)
     Route: 048
  10. ELTROMBOPAG OLAMINE [Suspect]
     Active Substance: ELTROMBOPAG OLAMINE
     Dosage: 50 MG, QD, FOR 6 DAYS
     Route: 048
  11. ELTROMBOPAG OLAMINE [Suspect]
     Active Substance: ELTROMBOPAG OLAMINE
     Dosage: 25 MG, QD, FOR 1 DAY
     Route: 048
  12. ASPIRIN [Concomitant]
     Active Substance: ASPIRIN
     Indication: Product used for unknown indication
     Dosage: UNK
     Route: 065

REACTIONS (8)
  - Haemoglobin decreased [Recovered/Resolved]
  - Protein total decreased [Recovered/Resolved]
  - Light chain analysis decreased [Recovered/Resolved]
  - Blood immunoglobulin G increased [Recovered/Resolved]
  - SARS-CoV-2 test positive [Recovered/Resolved]
  - Platelet count decreased [Recovered/Resolved]
  - Protein urine present [Unknown]
  - Glucose urine present [Unknown]

NARRATIVE: CASE EVENT DATE: 20220104
